FAERS Safety Report 15765189 (Version 4)
Quarter: 2019Q2

REPORT INFORMATION
  Report Type: Report from Study
  Country: US (occurrence: US)
  Receive Date: 20181227
  Receipt Date: 20190403
  Transmission Date: 20190711
  Serious: No
  Sender: FDA-Public Use
  Company Number: US-SAKK-2018SA344148AA

PATIENT
  Age: 71 Year
  Sex: Female

DRUGS (2)
  1. INSULIN GLULISINE [Suspect]
     Active Substance: INSULIN GLULISINE
     Indication: DIABETES MELLITUS
     Dosage: 20 U, TID
     Route: 058
     Dates: start: 20180815
  2. INSULIN GLARGINE [Suspect]
     Active Substance: INSULIN GLARGINE
     Indication: TYPE 2 DIABETES MELLITUS
     Dosage: 70 U, BID
     Route: 058

REACTIONS (1)
  - No adverse event [Unknown]
